FAERS Safety Report 7748851-X (Version None)
Quarter: 2011Q3

REPORT INFORMATION
  Report Type: 
  Country: None (occurrence: None)
  Receive Date: 20110909
  Receipt Date: 20110829
  Transmission Date: 20111222
  Serious: Yes (Other)
  Sender: FDA-Public Use
  Company Number: JP-2011-11409

PATIENT
  Age: 50 Year
  Sex: Female

DRUGS (2)
  1. CILOSTAZOL [Suspect]
     Dosage: 100 MG MILLIGRAM(S), DAILY DOSE, ORAL   100 MG MILLIGRAM(S), BID, ORAL
     Route: 048
     Dates: start: 20110101
  2. CILOSTAZOL [Suspect]
     Dosage: 100 MG MILLIGRAM(S), DAILY DOSE, ORAL   100 MG MILLIGRAM(S), BID, ORAL
     Route: 048
     Dates: start: 20110101

REACTIONS (1)
  - ALOPECIA [None]
